FAERS Safety Report 6682632-3 (Version None)
Quarter: 2010Q2

REPORT INFORMATION
  Report Type: 
  Country: None (occurrence: None)
  Receive Date: 20100415
  Receipt Date: 20100404
  Transmission Date: 20101027
  Serious: Yes (Hospitalization)
  Sender: FDA-Public Use
  Company Number: PHHY2010US22033

PATIENT
  Age: 86 Year
  Sex: Male
  Weight: 67.58 kg

DRUGS (3)
  1. RECLAST [Suspect]
     Indication: OSTEOPOROSIS
     Dosage: UNK
     Route: 042
     Dates: start: 20100327
  2. AVANDAMET [Concomitant]
  3. PROCARDIA XL [Concomitant]
     Dosage: 16 MG

REACTIONS (3)
  - CHEST PAIN [None]
  - PAIN [None]
  - PAIN IN EXTREMITY [None]
